FAERS Safety Report 8711496 (Version 2)
Quarter: 2015Q1

REPORT INFORMATION
  Report Type: Report from Study
  Country: US (occurrence: US)
  Receive Date: 20120829
  Receipt Date: 20150216
  Transmission Date: 20150721
  Serious: Yes (Other)
  Sender: FDA-Public Use
  Company Number: US-ROCHE-1096772

PATIENT
  Sex: Female

DRUGS (7)
  1. SINGULAIR [Concomitant]
     Active Substance: MONTELUKAST SODIUM
     Route: 065
     Dates: start: 20071229
  2. ALLEGRA [Concomitant]
     Active Substance: FEXOFENADINE HYDROCHLORIDE
     Route: 065
  3. FORADIL [Concomitant]
     Active Substance: FORMOTEROL FUMARATE
     Route: 065
  4. XOLAIR [Suspect]
     Active Substance: OMALIZUMAB
     Indication: ASTHMA
     Route: 058
     Dates: end: 20071201
  5. AVELOX (UNITED STATES) [Concomitant]
  6. ASMANEX [Concomitant]
     Active Substance: MOMETASONE FUROATE
     Route: 065
     Dates: start: 20071229
  7. PREDNISONE. [Suspect]
     Active Substance: PREDNISONE
     Indication: PRODUCT USED FOR UNKNOWN INDICATION
     Route: 065
     Dates: start: 20071229

REACTIONS (11)
  - Dyspnoea [Unknown]
  - Eye swelling [Unknown]
  - Insomnia [Unknown]
  - Wheezing [Unknown]
  - Food allergy [Unknown]
  - Cough [Unknown]
  - Headache [Unknown]
  - Sinusitis [Unknown]
  - Rash [Unknown]
  - Asthma [Unknown]
  - Feeling jittery [Unknown]
